FAERS Safety Report 13972704 (Version 1)
Quarter: 2017Q3

REPORT INFORMATION
  Report Type: Spontaneous
  Country: US (occurrence: None)
  Receive Date: 20170914
  Receipt Date: 20170914
  Transmission Date: 20171128
  Serious: No
  Sender: FDA-Public Use
  Company Number: None

PATIENT
  Age: 51 Year
  Sex: Female

DRUGS (1)
  1. HUMIRA [Suspect]
     Active Substance: ADALIMUMAB
     Indication: SPINAL OSTEOARTHRITIS
     Dosage: 40 MG EVERY OTHER WEEK SQ
     Route: 058
     Dates: start: 20170614, end: 20170712

REACTIONS (2)
  - Disease recurrence [None]
  - Sinusitis [None]
